FAERS Safety Report 7622379-X (Version None)
Quarter: 2011Q3

REPORT INFORMATION
  Report Type: 
  Country: None (occurrence: None)
  Receive Date: 20110711
  Receipt Date: 20110627
  Transmission Date: 20111222
  Serious: Yes (Hospitalization, Disabling, Other)
  Sender: FDA-Public Use
  Company Number: DSA_47074_2011

PATIENT
  Age: 21 Year
  Weight: 49.8957 kg

DRUGS (4)
  1. ATIVAN [Concomitant]
  2. IMOVANE [Concomitant]
  3. LORAZEPAM [Concomitant]
  4. WELLBUTRIN XL [Suspect]
     Indication: PRODUCT USED FOR UNKNOWN INDICATION
     Dosage: (150 MG QD ORAL), (300 MG QD ORAL)
     Route: 048

REACTIONS (3)
  - EMOTIONAL DISORDER [None]
  - PSYCHOTIC DISORDER [None]
  - TINNITUS [None]
